FAERS Safety Report 7610494-6 (Version None)
Quarter: 2011Q3

REPORT INFORMATION
  Report Type: 
  Country: None (occurrence: None)
  Receive Date: 20110715
  Receipt Date: 20100110
  Transmission Date: 20111222
  Serious: Yes (Death, Other)
  Sender: FDA-Public Use
  Company Number: US-BAYER-201010279NA

PATIENT
  Age: 62 Year
  Sex: Male
  Weight: 126.98 kg

DRUGS (23)
  1. SEPTRA [Concomitant]
     Indication: INFECTION
  2. TRASYLOL [Suspect]
     Indication: CORONARY ARTERY BYPASS
     Dosage: 1 ML, UNK TEST DOSE
     Route: 042
     Dates: start: 20061214, end: 20061214
  3. PLAVIX [Concomitant]
  4. TRASYLOL [Suspect]
     Dosage: 200 ML LOADING DOSE
     Route: 042
     Dates: start: 20061214, end: 20061214
  5. HEPARIN [Concomitant]
     Dosage: UNK
     Route: 042
     Dates: start: 20061214
  6. COREG [Concomitant]
     Indication: HYPERTENSION
  7. PROTAMINE SULFATE [Concomitant]
     Dosage: UNK
     Route: 042
     Dates: start: 20061214, end: 20061214
  8. ANCEF [Concomitant]
     Dosage: UNK
     Route: 042
     Dates: start: 20061214
  9. VANCOMYCIN [Concomitant]
     Dosage: UNK
     Route: 042
     Dates: start: 20061214
  10. CONTRAST MEDIA [Concomitant]
     Indication: CATHETERISATION CARDIAC
     Dosage: UNK
     Dates: start: 20061209
  11. RED BLOOD CELLS [Concomitant]
     Dosage: 2 U, UNK
     Route: 042
     Dates: start: 20061214
  12. METOPROLOL TARTRATE [Concomitant]
     Indication: HYPERTENSION
     Dosage: 50 MG, BID
     Route: 048
  13. ZOCOR [Concomitant]
     Indication: HYPERLIPIDAEMIA
  14. ACETYLSALICYLIC ACID SRT [Concomitant]
  15. CALCIUM CHLORIDE [Concomitant]
     Dosage: UNK
     Route: 042
     Dates: start: 20061214, end: 20061214
  16. TRASYLOL [Suspect]
     Dosage: 50ML/HR INFUSION
     Route: 042
     Dates: start: 20061214, end: 20061214
  17. FRESH FROZEN PLASMA [Concomitant]
     Dosage: 2 U, UNK
     Route: 042
     Dates: start: 20061214
  18. VERSED [Concomitant]
     Dosage: UNK
     Route: 042
     Dates: start: 20061214, end: 20061214
  19. LASIX [Concomitant]
     Indication: HYPERTENSION
     Dosage: 20 MG, QD
     Route: 048
  20. TRASYLOL [Suspect]
     Dosage: 200ML CARDIOPULMONARY BYPASS PRIME
     Dates: start: 20061214, end: 20061214
  21. FOSINOPRIL SODIUM [Concomitant]
     Indication: HYPERTENSION
     Dosage: 5 MG, QD
     Route: 048
  22. OMEPRAZOLE [Concomitant]
     Indication: GASTROOESOPHAGEAL REFLUX DISEASE
     Dosage: 20 MG, QD
     Route: 048
  23. GENTAMYCIN SULFATE [Concomitant]
     Dosage: UNK
     Route: 042
     Dates: start: 20061214

REACTIONS (12)
  - RENAL INJURY [None]
  - ANXIETY [None]
  - DEPRESSION [None]
  - FEAR [None]
  - MYOCARDIAL INFARCTION [None]
  - INJURY [None]
  - PAIN [None]
  - DEATH [None]
  - RENAL FAILURE [None]
  - UNEVALUABLE EVENT [None]
  - ANHEDONIA [None]
  - CEREBROVASCULAR ACCIDENT [None]
